FAERS Safety Report 21021098 (Version 4)
Quarter: 2023Q2

REPORT INFORMATION
  Report Type: Spontaneous
  Country: DE (occurrence: DE)
  Receive Date: 20220629
  Receipt Date: 20230402
  Transmission Date: 20230721
  Serious: Yes (Hospitalization, Other)
  Sender: FDA-Public Use
  Company Number: DE-BIOGEN-2022BI01134121

PATIENT
  Age: 59 Year
  Sex: Female
  Weight: 60 kg

DRUGS (9)
  1. TYSABRI [Suspect]
     Active Substance: NATALIZUMAB
     Indication: Multiple sclerosis
     Route: 050
     Dates: start: 20180202, end: 20210601
  2. TYSABRI [Suspect]
     Active Substance: NATALIZUMAB
     Route: 050
     Dates: start: 20180307, end: 20210601
  3. TYSABRI [Suspect]
     Active Substance: NATALIZUMAB
     Route: 050
     Dates: end: 202107
  4. DALFAMPRIDINE [Suspect]
     Active Substance: DALFAMPRIDINE
     Indication: Gait disturbance
     Route: 050
     Dates: start: 201609
  5. DALFAMPRIDINE [Suspect]
     Active Substance: DALFAMPRIDINE
     Route: 050
     Dates: start: 20210727
  6. MAYZENT [Suspect]
     Active Substance: SIPONIMOD
     Indication: Product used for unknown indication
     Route: 050
  7. IODINE [Concomitant]
     Active Substance: IODINE
     Indication: Product used for unknown indication
     Dosage: HEXAL
     Route: 050
     Dates: start: 20210727
  8. ZOLPIDEM [Concomitant]
     Active Substance: ZOLPIDEM TARTRATE
     Indication: Product used for unknown indication
     Route: 050
     Dates: start: 20210730
  9. SEROQUEL [Concomitant]
     Active Substance: QUETIAPINE FUMARATE
     Indication: Product used for unknown indication
     Dosage: AS NEEDED, DAILY
     Route: 050
     Dates: start: 20210731

REACTIONS (11)
  - Invasive ductal breast carcinoma [Recovered/Resolved]
  - Venous angioma of brain [Unknown]
  - Relapsing multiple sclerosis [Unknown]
  - Secondary progressive multiple sclerosis [Unknown]
  - Muscle spasticity [Unknown]
  - Hypothyroidism [Unknown]
  - Hypertension [Unknown]
  - Peripheral swelling [Unknown]
  - Hallucination [Unknown]
  - Hepatic cyst [Unknown]
  - Renal cyst [Unknown]

NARRATIVE: CASE EVENT DATE: 20210301
